FAERS Safety Report 12202993 (Version 1)
Quarter: 2016Q1

REPORT INFORMATION
  Report Type: Spontaneous
  Country: FR (occurrence: FR)
  Receive Date: 20160323
  Receipt Date: 20160323
  Transmission Date: 20160526
  Serious: Yes (Hospitalization)
  Sender: FDA-Public Use
  Company Number: FR-APOTEX-2016AP007173

PATIENT

DRUGS (14)
  1. REFRESH EYE DROPS [Concomitant]
     Dosage: 1 UNK, BID
     Route: 047
  2. DOLIPRANE TABLET [Concomitant]
     Dosage: UNK
     Route: 048
  3. ZOPICLONE [Concomitant]
     Active Substance: ZOPICLONE
     Indication: INSOMNIA
     Dosage: 7.5 MG, QD
     Route: 048
  4. AUGMENTIN ORAL POWDER [Concomitant]
     Indication: LUNG INFECTION
     Dosage: 1 G, TID
     Route: 048
     Dates: start: 20160129, end: 20160208
  5. ONBREZ BREEZHALER [Concomitant]
     Active Substance: INDACATEROL
     Dosage: 150 UNK, QD
     Route: 048
  6. LEVOTHYROX TABLET [Concomitant]
     Dosage: 125 UNK, QD
     Route: 048
  7. MOVICOL [Concomitant]
     Active Substance: POLYETHYLENE GLYCOL 3350\POTASSIUM CHLORIDE\SODIUM BICARBONATE\SODIUM CHLORIDE
     Indication: CONSTIPATION
     Dosage: 2 DF, QD
     Route: 048
     Dates: start: 20150202
  8. PAXIL [Suspect]
     Active Substance: PAROXETINE HYDROCHLORIDE
     Indication: DEPRESSION
     Dosage: UNK
     Route: 048
  9. XANAX [Concomitant]
     Active Substance: ALPRAZOLAM
     Indication: ANXIETY
     Dosage: 0.25 MG, TID
     Route: 048
  10. ECONAZOLE [Concomitant]
     Active Substance: ECONAZOLE
     Indication: FUNGAL INFECTION
     Dosage: UNK
     Route: 061
     Dates: start: 20160126
  11. LOVENOX SOLUTION FOR INJECTION [Concomitant]
     Dosage: 4000 UNK, QD
     Route: 058
     Dates: start: 20160204, end: 20160205
  12. KARDEGIC ORAL POWDER [Concomitant]
     Dosage: 75 MG, QD
     Route: 048
  13. LASILIX FAIBLE TABLET [Suspect]
     Active Substance: FUROSEMIDE
     Indication: PRODUCT USED FOR UNKNOWN INDICATION
     Dosage: 20 MG, QD
     Route: 048
     Dates: end: 20160201
  14. RISPERIDONE ORAL SOLUTION [Concomitant]
     Active Substance: RISPERIDONE
     Indication: PSYCHOTIC DISORDER
     Dosage: UNK
     Route: 048
     Dates: start: 20160127

REACTIONS (6)
  - Hyponatraemia [Recovered/Resolved]
  - Hallucinations, mixed [None]
  - Persecutory delusion [None]
  - Acute kidney injury [Recovered/Resolved]
  - Agitation [None]
  - Dementia [None]

NARRATIVE: CASE EVENT DATE: 201602
